FAERS Safety Report 9918724 (Version 1)
Quarter: 2014Q1

REPORT INFORMATION
  Report Type: Report from Study
  Country: KR (occurrence: KR)
  Receive Date: 20140224
  Receipt Date: 20140224
  Transmission Date: 20141002
  Serious: Yes (Other)
  Sender: FDA-Public Use
  Company Number: KR-ROCHE-1349164

PATIENT
  Age: 60 Year
  Sex: Female

DRUGS (1)
  1. BEVACIZUMAB [Suspect]
     Indication: AGE-RELATED MACULAR DEGENERATION
     Dosage: 1.25MG/0.05ML
     Route: 050

REACTIONS (4)
  - Intraocular pressure increased [Recovered/Resolved]
  - Headache [Unknown]
  - Visual acuity reduced [Unknown]
  - Off label use [Unknown]
